FAERS Safety Report 12177834 (Version 1)
Quarter: 2016Q1

REPORT INFORMATION
  Report Type: Spontaneous
  Country: US (occurrence: US)
  Receive Date: 20160314
  Receipt Date: 20160314
  Transmission Date: 20160526
  Serious: Yes (Hospitalization)
  Sender: FDA-Public Use
  Company Number: US-SA-2016SA046590

PATIENT
  Age: 74 Year
  Sex: Female

DRUGS (3)
  1. COUMADIN [Concomitant]
     Active Substance: WARFARIN SODIUM
     Route: 065
  2. HEPARIN [Concomitant]
     Active Substance: HEPARIN SODIUM
     Route: 065
  3. LOVENOX [Suspect]
     Active Substance: ENOXAPARIN SODIUM
     Indication: DEEP VEIN THROMBOSIS
     Dosage: START DATE,TWO WEEKS AGO
     Route: 065

REACTIONS (5)
  - Injection site pain [Unknown]
  - Abdominal distension [Unknown]
  - Viral infection [Unknown]
  - Contusion [Unknown]
  - Obstructive airways disorder [Unknown]
